FAERS Safety Report 6314531-0 (Version None)
Quarter: 2009Q3

REPORT INFORMATION
  Report Type: 
  Country: None (occurrence: None)
  Receive Date: 20090817
  Receipt Date: 20090807
  Transmission Date: 20100115
  Serious: Yes (Other)
  Sender: FDA-Public Use
  Company Number: SPV1-2009-01084

PATIENT
  Age: 74 Year
  Sex: Male

DRUGS (5)
  1. FOSRENOL [Suspect]
     Indication: HYPERPHOSPHATAEMIA
     Dosage: 0,UNK,UNK
     Dates: start: 20090409, end: 20090416
  2. FOSRENOL [Suspect]
     Indication: HYPERPHOSPHATAEMIA
     Dosage: 0,UNK,UNK
     Dates: start: 20090417, end: 20090520
  3. RENAGEL [Concomitant]
  4. CALTAN (CALCIUM CARBONATE) [Concomitant]
  5. ASPIRIN [Concomitant]

REACTIONS (5)
  - DUODENITIS [None]
  - GASTRITIS EROSIVE [None]
  - HIATUS HERNIA [None]
  - MALLORY-WEISS SYNDROME [None]
  - REFLUX OESOPHAGITIS [None]
